FAERS Safety Report 5809327-X (Version None)
Quarter: 2008Q3

REPORT INFORMATION
  Report Type: 
  Country: None (occurrence: None)
  Receive Date: 20080714
  Receipt Date: 20080709
  Transmission Date: 20090109
  Serious: Yes (Death, Other)
  Sender: FDA-Public Use
  Company Number: US-WYE-H01559407

PATIENT
  Age: 69 Year
  Sex: Male

DRUGS (11)
  1. TORISEL [Suspect]
     Indication: GLIOBLASTOMA MULTIFORME
     Route: 042
     Dates: start: 20060720, end: 20061116
  2. DEXAMETHASONE [Suspect]
     Indication: GLIOBLASTOMA MULTIFORME
     Dosage: DOSE AND DATES OF THERAPY WERE NOT PROVIDED
     Route: 065
  3. GLIMEPIRIDE [Concomitant]
     Dosage: DOSE AND DATES OF THERAPY NOT PROVIDED
     Route: 065
  4. HYZAAR [Concomitant]
     Dosage: DOSE AND DATES OF THERAPY WERE NOT PROVIDED
     Route: 065
  5. LORAZEPAM [Concomitant]
     Dosage: DOSE AND DATES OF THERAPY WERE NOT PROVIDED
     Route: 065
  6. EZETIMIBE/SIMVASTATIN [Concomitant]
     Dosage: DOSE AND DATES OF THERAPY WERE NOT PROVIDED
     Route: 065
  7. LEVETIRACETAM [Concomitant]
     Dosage: DOSE AND DATES OF THERAPY WERE NOT PROVIDED
     Route: 065
  8. PROTONIX [Concomitant]
     Dosage: DOSE AND DATES OF THERAPY WERE NOT SPECIFIED
     Route: 065
  9. TEMOZOLOMIDE [Suspect]
     Indication: GLIOBLASTOMA MULTIFORME
     Route: 048
     Dates: start: 20060720, end: 20060101
  10. TEMOZOLOMIDE [Suspect]
     Dosage: 200 MG/M2 DAYS 1-5 (ADJUVANT CYCLES)
     Route: 048
     Dates: start: 20060101, end: 20061106
  11. CLARITHROMYCIN [Concomitant]
     Dosage: DOSE AND DATES OF THERAPY WERE NOT PROVIDED
     Route: 065

REACTIONS (8)
  - ACUTE RESPIRATORY DISTRESS SYNDROME [None]
  - CONTINUOUS HAEMODIAFILTRATION [None]
  - MULTI-ORGAN FAILURE [None]
  - MUSCULAR WEAKNESS [None]
  - PNEUMOCYSTIS JIROVECI PNEUMONIA [None]
  - PULMONARY EMBOLISM [None]
  - RENAL FAILURE [None]
  - STAPHYLOCOCCAL SEPSIS [None]
